FAERS Safety Report 6940273-4 (Version None)
Quarter: 2010Q3

REPORT INFORMATION
  Report Type: 
  Country: None (occurrence: None)
  Receive Date: 20100825
  Receipt Date: 20100818
  Transmission Date: 20110219
  Serious: Yes (Death, Hospitalization)
  Sender: FDA-Public Use
  Company Number: PHHY2010BR54628

PATIENT
  Sex: Female

DRUGS (3)
  1. APRESOLINE [Suspect]
     Indication: HYPERTENSION
     Dosage: 50 MG, 1 TABLET DAILY
     Route: 048
  2. DIOVAN [Suspect]
     Indication: HYPERTENSION
     Dosage: 160 MG,  1 TABLET DAILY
     Route: 048
  3. ATENOLOL [Concomitant]
     Dosage: 100 MG, 1 TABLET DAILY

REACTIONS (4)
  - ABDOMINAL PAIN [None]
  - CARDIO-RESPIRATORY ARREST [None]
  - GASTROINTESTINAL CARCINOMA [None]
  - GASTROINTESTINAL SURGERY [None]
